FAERS Safety Report 15213000 (Version 1)
Quarter: 2018Q3

REPORT INFORMATION
  Report Type: Spontaneous
  Country: US (occurrence: US)
  Receive Date: 20180730
  Receipt Date: 20180730
  Transmission Date: 20181010
  Serious: No
  Sender: FDA-Public Use
  Company Number: US-GLENMARK PHARMACEUTICALS-2018GMK035895

PATIENT

DRUGS (2)
  1. MUPIROCIN. [Suspect]
     Active Substance: MUPIROCIN
     Indication: VULVOVAGINAL PRURITUS
     Dosage: UNK, OD
     Route: 061
     Dates: start: 20180529, end: 20180529
  2. MUPIROCIN. [Suspect]
     Active Substance: MUPIROCIN
     Indication: RASH
     Dosage: UNK, OD
     Route: 061
     Dates: start: 20180525

REACTIONS (2)
  - Product use in unapproved indication [Unknown]
  - Application site pain [Not Recovered/Not Resolved]

NARRATIVE: CASE EVENT DATE: 20180525
